FAERS Safety Report 9079755 (Version 2)
Quarter: 2013Q2

REPORT INFORMATION
  Report Type: Spontaneous
  Country: US (occurrence: US)
  Receive Date: 20130215
  Receipt Date: 20130426
  Transmission Date: 20140414
  Serious: Yes (Other)
  Sender: FDA-Public Use
  Company Number: US-GLAXOSMITHKLINE-A1012248A

PATIENT
  Age: 50 Year
  Sex: Male

DRUGS (1)
  1. ADVAIR [Suspect]
     Indication: ASTHMA
     Route: 055

REACTIONS (7)
  - Glaucoma [Unknown]
  - Bone disorder [Unknown]
  - Arthritis [Unknown]
  - Intervertebral disc protrusion [Unknown]
  - Adverse drug reaction [Not Recovered/Not Resolved]
  - Bone density decreased [Not Recovered/Not Resolved]
  - Spinal disorder [Not Recovered/Not Resolved]
